FAERS Safety Report 6187697-3 (Version None)
Quarter: 2009Q2

REPORT INFORMATION
  Report Type: 
  Country: None (occurrence: None)
  Receive Date: 20090513
  Receipt Date: 20081201
  Transmission Date: 20091009
  Serious: Yes (Other)
  Sender: FDA-Public Use
  Company Number: JP-PFIZER INC-2008095624

PATIENT
  Age: 28 Year

DRUGS (3)
  1. SOLU-CORTEF [Suspect]
     Indication: ASTHMA
     Route: 042
     Dates: start: 20070901, end: 20070901
  2. PREDNISOLONE AND PREDNISOLONE STEAGLATE [Suspect]
     Route: 048
     Dates: start: 20070901
  3. BECLOMETASONE [Suspect]
     Indication: ASTHMA
     Route: 055
     Dates: start: 20070901

REACTIONS (1)
  - BRONCHOPULMONARY ASPERGILLOSIS ALLERGIC [None]
